FAERS Safety Report 4296561-6 (Version None)
Quarter: 2004Q1

REPORT INFORMATION
  Report Type: 
  Country: None (occurrence: None)
  Receive Date: 20040126
  Receipt Date: 20030825
  Transmission Date: 20041129
  Serious: No
  Sender: FDA-Public Use
  Company Number: USA030845341

PATIENT
  Age: 19 Year
  Sex: Male
  Weight: 66 kg

DRUGS (1)
  1. STRATTERA [Suspect]
     Dosage: 80 MG/DAY
     Dates: start: 20030601

REACTIONS (4)
  - ABDOMINAL PAIN [None]
  - PENILE PAIN [None]
  - TESTICULAR PAIN [None]
  - URINARY HESITATION [None]
